FAERS Safety Report 17354381 (Version 1)
Quarter: 2020Q1

REPORT INFORMATION
  Report Type: Spontaneous
  Country: US (occurrence: US)
  Receive Date: 20200130
  Receipt Date: 20200130
  Transmission Date: 20200409
  Serious: Yes (Other)
  Sender: FDA-Public Use
  Company Number: None

PATIENT
  Age: 54 Year
  Sex: Male

DRUGS (4)
  1. CEPHALEXIN CAP 500MG [Concomitant]
     Dates: start: 20000128
  2. BOSENTAN. [Suspect]
     Active Substance: BOSENTAN
     Indication: PULMONARY ARTERIAL HYPERTENSION
     Route: 048
     Dates: start: 20191009
  3. PREDNISONE TABS 10MG [Concomitant]
     Dates: start: 20000128
  4. VITAMIN D CAPS 500000UNT [Concomitant]
     Dates: start: 20200111

REACTIONS (2)
  - Skin infection [None]
  - Tendonitis [None]

NARRATIVE: CASE EVENT DATE: 20200130
